FAERS Safety Report 4896753-9 (Version None)
Quarter: 2005Q4

REPORT INFORMATION
  Report Type: 
  Country: None (occurrence: None)
  Receive Date: 20051223
  Receipt Date: 20050202
  Transmission Date: 20060501
  Serious: Yes (Other)
  Sender: FDA-Public Use
  Company Number: CHPA2005US00443

PATIENT
  Age: 21 Year
  Sex: Male
  Weight: 65.8 kg

DRUGS (2)
  1. TRANSDERM SCOP [Suspect]
     Indication: DROOLING
     Dosage: SEE IMAGE
     Route: 062
     Dates: start: 20041001
  2. TRANSDERM SCOP [Suspect]
     Dosage: 1 PACH, Q72H, TRANSDERMAL
     Route: 062
     Dates: start: 20041201

REACTIONS (3)
  - CONVULSION [None]
  - PETIT MAL EPILEPSY [None]
  - THERAPEUTIC RESPONSE UNEXPECTED [None]
